FAERS Safety Report 18507258 (Version 1)
Quarter: 2020Q4

REPORT INFORMATION
  Report Type: Spontaneous
  Country: US (occurrence: US)
  Receive Date: 20201116
  Receipt Date: 20201116
  Transmission Date: 20210114
  Serious: No
  Sender: FDA-Public Use
  Company Number: US-PFIZER INC-2020445193

PATIENT
  Age: 67 Year
  Sex: Female

DRUGS (5)
  1. CARBOPLATIN. [Concomitant]
     Active Substance: CARBOPLATIN
     Dosage: UNK, CYCLIC (AUC 6 Q 21 D X 6, 6 CYCLES)
     Dates: start: 20181116, end: 20200115
  2. DOCETAXEL. [Suspect]
     Active Substance: DOCETAXEL
     Indication: BREAST CANCER FEMALE
     Dosage: UNK
  3. TAXOTERE [Concomitant]
     Active Substance: DOCETAXEL
     Dosage: 75 MG, CYCLIC
     Route: 042
     Dates: start: 20181116, end: 20200115
  4. HERCEPTIN [Concomitant]
     Active Substance: TRASTUZUMAB
     Dosage: 8 MG/KG, CYCLIC (Q 21 D X 17 CYCLES)
     Route: 042
     Dates: start: 20181116, end: 20200115
  5. HERCEPTIN [Concomitant]
     Active Substance: TRASTUZUMAB
     Dosage: 6 MG/KG, CYCLIC (Q 21 D X 17 CYCLES)
     Route: 042
     Dates: start: 20181116, end: 20200115

REACTIONS (2)
  - Dacryostenosis acquired [Not Recovered/Not Resolved]
  - Dry eye [Unknown]
